FAERS Safety Report 5424982-4 (Version None)
Quarter: 2007Q3

REPORT INFORMATION
  Report Type: 
  Country: None (occurrence: None)
  Receive Date: 20070824
  Receipt Date: 20070817
  Transmission Date: 20080115
  Serious: Yes (Death)
  Sender: FDA-Public Use
  Company Number: B0484223A

PATIENT
  Age: 69 Year
  Sex: Male
  Weight: 114 kg

DRUGS (12)
  1. AUGMENTIN '125' [Suspect]
     Dosage: 2G FOUR TIMES PER DAY
     Route: 042
     Dates: start: 20061022, end: 20061101
  2. ASPIRIN [Concomitant]
     Dosage: 100MG PER DAY
     Route: 048
  3. HALDOL [Concomitant]
     Dosage: 1MG TWICE PER DAY
     Route: 048
  4. LISINOPRIL [Concomitant]
     Dosage: 20MG PER DAY
     Route: 048
  5. SIMVASTATIN [Concomitant]
     Dosage: 20MG PER DAY
     Route: 048
  6. TORSEMIDE [Concomitant]
     Dosage: 10MG PER DAY
     Route: 048
  7. ALFUZOSIN HYDROCHLORIDE [Concomitant]
     Dosage: 1MG PER DAY
     Route: 048
  8. DAFALGAN [Concomitant]
     Dosage: 1G FOUR TIMES PER DAY
     Route: 048
  9. CALCIUM POLYSTYRENE SULFONATE [Concomitant]
     Dosage: 20G TWICE PER DAY
     Route: 048
  10. TRUSOPT [Concomitant]
     Route: 061
  11. XALATAN [Concomitant]
     Route: 061
  12. INSULATARD [Concomitant]
     Route: 058

REACTIONS (7)
  - CARDIOPULMONARY FAILURE [None]
  - COMA [None]
  - CONFUSIONAL STATE [None]
  - LEUKOCYTOCLASTIC VASCULITIS [None]
  - MULTI-ORGAN FAILURE [None]
  - NEPHRITIS INTERSTITIAL [None]
  - RENAL FAILURE ACUTE [None]
